FAERS Safety Report 8522290-6 (Version None)
Quarter: 2012Q3

REPORT INFORMATION
  Report Type: 
  Country: None (occurrence: None)
  Receive Date: 20120719
  Receipt Date: 20120716
  Transmission Date: 20120928
  Serious: Yes (Other)
  Sender: FDA-Public Use
  Company Number: PHHY2012BR061761

PATIENT
  Sex: Female

DRUGS (2)
  1. DIOVAN HCT [Suspect]
     Indication: ARTERIAL OCCLUSIVE DISEASE
     Dosage: 1 DF (160/12.5 MG), QD (IN THE MORNING)
     Route: 048
  2. METFORMIN HCL [Suspect]
     Indication: DIABETES MELLITUS
     Dosage: 2 DF (850/50 MG), DAILY
     Route: 048

REACTIONS (2)
  - FALL [None]
  - UPPER LIMB FRACTURE [None]
